FAERS Safety Report 9490971 (Version 2)
Quarter: 2014Q1

REPORT INFORMATION
  Report Type: Spontaneous
  Country: US (occurrence: US)
  Receive Date: 20130830
  Receipt Date: 20140318
  Transmission Date: 20141002
  Serious: Yes (Hospitalization, Other)
  Sender: FDA-Public Use
  Company Number: US-BAYER-2013-105039

PATIENT
  Age: 47 Year
  Sex: Female

DRUGS (17)
  1. MIRENA [Suspect]
     Indication: CONTRACEPTION
     Dosage: 20 MCG/24HR, CONT
     Route: 015
     Dates: start: 20110901, end: 20120405
  2. MIRENA [Suspect]
     Indication: MENORRHAGIA
     Dosage: 20 MCG/24HR, CONT
     Route: 015
     Dates: start: 2002, end: 2007
  3. MIRENA [Suspect]
     Indication: CONTRACEPTION
     Dosage: 20 MCG/24HR, CONT
     Route: 015
     Dates: start: 20120530, end: 20121102
  4. ADVAIR DISKUS [Concomitant]
     Dosage: 500-50 MCG, 1 PUFF TWICE DAILY
  5. ALBUTEROL [Concomitant]
     Dosage: 90 MCG, 2 PUFFS EVERY 6 HOURS, PRN
  6. ALPRAZOLAM [Concomitant]
     Dosage: 1 MG, UNK
     Route: 048
  7. CLARITIN [Concomitant]
     Route: 048
  8. CYCLOBENZAPRINE [Concomitant]
     Dosage: 5 MG, TID
     Route: 048
  9. ETODOLAC [Concomitant]
     Dosage: 200 MG, UNK
     Route: 048
  10. LIPITOR [Concomitant]
     Dosage: 10 MG, UNK
     Route: 048
  11. OMEPRAZOLE [Concomitant]
     Dosage: 20 MG, UNK
     Route: 048
  12. SINGULAIR [Concomitant]
     Dosage: 10 MG, EACH EVENING
     Route: 048
  13. TYLENOL W/CODEINE NO. 3 [Concomitant]
     Dosage: 300-30 MG
     Route: 048
  14. VOLTAREN [Concomitant]
     Route: 061
  15. XOLAIR [Concomitant]
     Dosage: 150 MG, UNK
     Route: 058
  16. SEASONIQUE [Concomitant]
  17. DIFLUCAN [Concomitant]
     Dosage: 150 MG, UNK
     Route: 048

REACTIONS (9)
  - Uterine perforation [None]
  - Vaginal haemorrhage [None]
  - Uterine leiomyoma [None]
  - Injury [None]
  - Medical device pain [None]
  - Infection [None]
  - Device dislocation [None]
  - Depression [None]
  - Anxiety [None]
